FAERS Safety Report 5890983-5 (Version None)
Quarter: 2008Q3

REPORT INFORMATION
  Report Type: 
  Country: None (occurrence: None)
  Receive Date: 20080922
  Receipt Date: 20080918
  Transmission Date: 20090109
  Serious: Yes (Hospitalization, Congenital Anomaly)
  Sender: FDA-Public Use
  Company Number: B0526254A

PATIENT
  Age: 10 Day
  Sex: Female

DRUGS (7)
  1. RETROVIR [Suspect]
     Indication: ANTIVIRAL PROPHYLAXIS
     Dosage: 1.2MG PER DAY
     Route: 042
     Dates: start: 20080331, end: 20080410
  2. AMPICILLIN [Suspect]
     Dosage: 80MG PER DAY
     Route: 065
     Dates: start: 20080331, end: 20080407
  3. GENTAMICINA [Suspect]
     Dosage: 4MG PER DAY
     Route: 065
     Dates: start: 20080331, end: 20080410
  4. SAQUINAVIR [Concomitant]
     Dates: start: 20071101
  5. RITONAVIR [Concomitant]
     Dates: start: 20071101
  6. LAMIVUDINE [Concomitant]
     Dates: start: 20071101
  7. ZIDOVUDINE [Concomitant]
     Dates: start: 20071101

REACTIONS (4)
  - DRUG EXPOSURE DURING PREGNANCY [None]
  - HEART DISEASE CONGENITAL [None]
  - HYPERTROPHIC CARDIOMYOPATHY [None]
  - VENTRICULAR HYPERTROPHY [None]
